FAERS Safety Report 15664555 (Version 1)
Quarter: 2018Q4

REPORT INFORMATION
  Report Type: Report from Study
  Country: FR (occurrence: FR)
  Receive Date: 20181128
  Receipt Date: 20181128
  Transmission Date: 20190205
  Serious: Yes (Death, Life-Threatening, Hospitalization, Other)
  Sender: FDA-Public Use
  Company Number: FR-009507513-1809FRA002439

PATIENT
  Age: 66 Year
  Sex: Male
  Weight: 79 kg

DRUGS (12)
  1. ENDOXAN [Suspect]
     Active Substance: CYCLOPHOSPHAMIDE
     Indication: PROPHYLAXIS AGAINST GRAFT VERSUS HOST DISEASE
     Dosage: 1059 MG OR 3650 MG DAILY
     Route: 042
     Dates: start: 20180815, end: 20180825
  2. ENDOXAN [Suspect]
     Active Substance: CYCLOPHOSPHAMIDE
     Indication: TRANSPLANT
  3. ZAVEDOS [Suspect]
     Active Substance: IDARUBICIN
     Indication: ACUTE MYELOID LEUKAEMIA
     Dosage: 22 MILLIGRAM, QD
     Route: 041
     Dates: start: 20180505, end: 20180707
  4. LETERMOVIR [Suspect]
     Active Substance: LETERMOVIR
     Indication: ANTIVIRAL PROPHYLAXIS
     Dosage: 240 MG (2 TABLETS), QD
     Route: 048
     Dates: start: 20180828, end: 20180908
  5. MESNA. [Concomitant]
     Active Substance: MESNA
     Dosage: UNK; 100 MG/ML
  6. CYTARABINE. [Suspect]
     Active Substance: CYTARABINE
     Indication: ACUTE MYELOID LEUKAEMIA
     Dosage: UNK
     Route: 041
     Dates: start: 20180506, end: 20180728
  7. SANDIMMUN [Concomitant]
     Active Substance: CYCLOSPORINE
     Indication: TRANSPLANT
  8. CELLCEPT [Suspect]
     Active Substance: MYCOPHENOLATE MOFETIL\MYCOPHENOLATE MOFETIL HYDROCHLORIDE
     Indication: TRANSPLANT
  9. CYTARABINE. [Suspect]
     Active Substance: CYTARABINE
     Dosage: 1 WEEK MONTHLY
     Route: 042
     Dates: start: 20170128, end: 20170501
  10. FLUDARABINE PHOSPHATE. [Suspect]
     Active Substance: FLUDARABINE PHOSPHATE
     Indication: ACUTE MYELOID LEUKAEMIA
     Dosage: 55 MILLIGRAM, QD
     Route: 042
     Dates: start: 20180815, end: 20180819
  11. CELLCEPT [Suspect]
     Active Substance: MYCOPHENOLATE MOFETIL\MYCOPHENOLATE MOFETIL HYDROCHLORIDE
     Indication: PROPHYLAXIS AGAINST GRAFT VERSUS HOST DISEASE
     Dosage: UNK
     Route: 042
     Dates: start: 20180826, end: 20180908
  12. SANDIMMUN [Concomitant]
     Active Substance: CYCLOSPORINE
     Indication: PROPHYLAXIS AGAINST GRAFT VERSUS HOST DISEASE
     Dosage: UNK
     Route: 042
     Dates: start: 20180826, end: 20180830

REACTIONS (5)
  - Acute kidney injury [Not Recovered/Not Resolved]
  - Product administration error [Unknown]
  - Atrial fibrillation [Recovered/Resolved]
  - Cardiac failure acute [Recovered/Resolved]
  - Septic shock [Fatal]

NARRATIVE: CASE EVENT DATE: 20180830
